FAERS Safety Report 6526904 (Version 4)
Quarter: 2020Q3

REPORT INFORMATION
  Report Type: Report from Study
  Country: US (occurrence: US)
  Receive Date: 20080115
  Receipt Date: 20090403
  Transmission Date: 20201104
  Serious: Yes (Death, Hospitalization)
  Sender: FDA-Public Use
  Company Number: US-JNJFOC-20080102731

PATIENT
  Age: 1 Year
  Sex: Male
  Weight: 11 kg

DRUGS (23)
  1. ALUMINIUM SULFATE [Concomitant]
     Indication: WOUND TREATMENT
     Dosage: STARTED PRE TRIAL
     Route: 061
  2. IPRATROPIUM [Concomitant]
     Active Substance: IPRATROPIUM
     Indication: HYPERSENSITIVITY
     Dosage: STARTED PRE TRIAL
     Route: 065
  3. URSODIOL. [Concomitant]
     Active Substance: URSODIOL
     Indication: CHOLESTASIS
     Dosage: STARTED PRE TRIAL
     Route: 065
  4. MEROPENEM. [Concomitant]
     Active Substance: MEROPENEM
     Route: 065
  5. POTASSIUM CHLORIDE. [Concomitant]
     Active Substance: POTASSIUM CHLORIDE
     Route: 065
  6. PETROLATUM. [Concomitant]
     Active Substance: PETROLATUM
  7. ACETAMINOPHEN. [Concomitant]
     Active Substance: ACETAMINOPHEN
     Indication: PAIN
     Route: 065
  8. NYSTATIN. [Concomitant]
     Active Substance: NYSTATIN
     Indication: SKIN DISORDER
     Dosage: STARTED PRE TRIAL
     Route: 061
  9. DAPTOMYCIN [Concomitant]
     Indication: DEVICE RELATED INFECTION
     Route: 065
  10. CEFOTAXIME [Concomitant]
     Active Substance: CEFOTAXIME SODIUM
     Indication: DEVICE RELATED INFECTION
     Route: 065
  11. CISAPRIDE [Suspect]
     Active Substance: CISAPRIDE
     Route: 050
  12. METOCLOPRAMIDE. [Concomitant]
     Active Substance: METOCLOPRAMIDE
     Indication: GASTROINTESTINAL HYPERMOTILITY
     Dosage: STARTED PRE TRIAL
     Route: 050
  13. ALCOHOL. [Concomitant]
     Active Substance: ALCOHOL
  14. CISAPRIDE [Suspect]
     Active Substance: CISAPRIDE
     Indication: GASTROOESOPHAGEAL REFLUX DISEASE
     Route: 050
  15. PANTOPRAZOLE SODIUM. [Concomitant]
     Active Substance: PANTOPRAZOLE SODIUM
     Indication: GASTROINTESTINAL DISORDER THERAPY
     Dosage: EVERY 12 HOURS
     Route: 042
  16. PARAFFIN\PETROLATUM [Concomitant]
     Indication: DRY SKIN
     Dosage: STARTED PRE TRIAL
     Route: 061
  17. MEROPENEM. [Concomitant]
     Active Substance: MEROPENEM
     Indication: DEVICE RELATED INFECTION
     Route: 065
  18. ACETAMINOPHEN. [Concomitant]
     Active Substance: ACETAMINOPHEN
     Indication: PYREXIA
     Dosage: STARTED PRE TRIAL
     Route: 065
  19. DIPHENHYDRAMINE. [Concomitant]
     Active Substance: DIPHENHYDRAMINE
     Indication: RED MAN SYNDROME
     Dosage: STARTED PRE TRIAL
     Route: 042
  20. HYDROCORTISONE. [Concomitant]
     Active Substance: HYDROCORTISONE
     Indication: DERMATITIS ATOPIC
     Dosage: STARTED PRE TRIAL
     Route: 061
  21. LANSOPRAZOLE. [Concomitant]
     Active Substance: LANSOPRAZOLE
     Indication: GASTROINTESTINAL DISORDER THERAPY
     Dosage: STARTED PRE TRIAL
     Route: 065
  22. VANCOMYCIN HYDROCHLORIDE. [Concomitant]
     Active Substance: VANCOMYCIN HYDROCHLORIDE
     Route: 065
  23. VANCOMYCIN HYDROCHLORIDE. [Concomitant]
     Active Substance: VANCOMYCIN HYDROCHLORIDE
     Indication: DEVICE RELATED INFECTION
     Route: 065

REACTIONS (2)
  - Respiratory failure [Fatal]
  - Catheter site infection [Recovered/Resolved]

NARRATIVE: CASE EVENT DATE: 20071113
